FAERS Safety Report 8439729-7 (Version None)
Quarter: 2012Q2

REPORT INFORMATION
  Report Type: 
  Country: None (occurrence: None)
  Receive Date: 20120615
  Receipt Date: 20120604
  Transmission Date: 20120825
  Serious: Yes (Life-Threatening, Other)
  Sender: FDA-Public Use
  Company Number: FR-PFIZER INC-2012086260

PATIENT
  Age: 68 Year
  Sex: Male

DRUGS (24)
  1. TRAMADOL HCL [Concomitant]
     Dosage: UNK
  2. ROCEPHIN [Concomitant]
     Indication: STAPHYLOCOCCAL SEPSIS
     Dosage: UNK
     Dates: start: 20091228, end: 20100112
  3. PANTOPRAZOLE SODIUM [Suspect]
     Dosage: 40 MG, DAILY
     Route: 048
     Dates: start: 20070802
  4. TENORMIN [Concomitant]
     Indication: MYOCARDIAL ISCHAEMIA
     Dosage: UNK
  5. LYRICA [Concomitant]
     Indication: DIABETIC NEUROPATHY
     Dosage: UNK
     Route: 048
     Dates: start: 20071122, end: 20110905
  6. PARACETAMOL [Concomitant]
     Dosage: UNK
  7. IRON [Concomitant]
     Dosage: UNK
  8. KAYEXALATE [Concomitant]
     Indication: RENAL FAILURE CHRONIC
     Dosage: UNK
  9. ORBENIN CAP [Concomitant]
     Indication: STAPHYLOCOCCAL SEPSIS
     Dosage: UNK
     Dates: start: 20090101
  10. GENTAMICIN [Concomitant]
     Indication: KLEBSIELLA INFECTION
     Dosage: UNK
     Dates: start: 20091228, end: 20100112
  11. RENAGEL [Suspect]
     Dosage: 800 MG, 3X/DAY
     Route: 048
     Dates: start: 20101201, end: 20111125
  12. RENVELA [Suspect]
     Indication: HYPERPHOSPHATAEMIA
     Dosage: 800 MG, 3X/DAY
     Route: 048
     Dates: start: 20101011, end: 20101129
  13. CLARITIN [Concomitant]
     Dosage: UNK
  14. ASPIRIN [Concomitant]
     Indication: MYOCARDIAL ISCHAEMIA
     Dosage: UNK
     Dates: start: 20110101
  15. RENAGEL [Suspect]
     Indication: HYPERPHOSPHATAEMIA
     Dosage: 800 MG, 3X/DAY
     Route: 048
     Dates: start: 20070802, end: 20101011
  16. PLAVIX [Suspect]
     Indication: MYOCARDIAL ISCHAEMIA
     Dosage: 75 MG, UNK
     Route: 048
     Dates: start: 20050101, end: 20110101
  17. IRON [Concomitant]
     Indication: RENAL FAILURE CHRONIC
     Dosage: UNK
     Dates: start: 20100709, end: 20101229
  18. LIDOCAINE [Concomitant]
     Dosage: UNK
  19. ROCEPHIN [Concomitant]
     Indication: KLEBSIELLA INFECTION
  20. NOVOLOG MIX 70/30 [Concomitant]
     Indication: TYPE 2 DIABETES MELLITUS
     Dosage: UNK
     Dates: start: 20110601
  21. CALCIUM CARBONATE [Concomitant]
     Indication: RENAL FAILURE CHRONIC
     Dosage: UNK
  22. IRBESARTAN [Suspect]
     Indication: MYOCARDIAL ISCHAEMIA
     Dosage: 300MG, THEN 150MG, THEN 75MG
     Route: 048
     Dates: start: 20070802, end: 20111125
  23. FOLIC ACID [Concomitant]
     Dosage: UNK
     Dates: start: 20100510
  24. PRAVASTATIN [Concomitant]
     Indication: MYOCARDIAL ISCHAEMIA
     Dosage: UNK

REACTIONS (5)
  - TOE AMPUTATION [None]
  - VARICOSE ULCERATION [None]
  - SEPSIS [None]
  - KLEBSIELLA INFECTION [None]
  - NEUTROPENIA [None]
